FAERS Safety Report 4923151-1 (Version None)
Quarter: 2006Q1

REPORT INFORMATION
  Report Type: 
  Country: None (occurrence: None)
  Receive Date: 20060113
  Receipt Date: 20050112
  Transmission Date: 20060701
  Serious: Yes (Hospitalization)
  Sender: FDA-Public Use
  Company Number: HQWYE200716JUL04

PATIENT
  Age: 42 Year
  Sex: Female
  Weight: 106.69 kg

DRUGS (3)
  1. PREMPRO [Suspect]
     Indication: OOPHORECTOMY
     Dosage: ORAL
     Route: 048
     Dates: start: 20020101
  2. FEM-MONO (ISOSORBIDE MONONITRATE, ) [Suspect]
     Indication: OOPHORECTOMY
     Dates: start: 20040101
  3. PREMARIN [Suspect]
     Indication: OOPHORECTOMY
     Dosage: ORAL
     Route: 048
     Dates: start: 20020101

REACTIONS (2)
  - DEEP VEIN THROMBOSIS [None]
  - PULMONARY EMBOLISM [None]
